FAERS Safety Report 23857497 (Version 1)
Quarter: 2024Q2

REPORT INFORMATION
  Report Type: Spontaneous
  Country: US (occurrence: US)
  Receive Date: 20240515
  Receipt Date: 20240515
  Transmission Date: 20240716
  Serious: Yes (Other)
  Sender: FDA-Public Use
  Company Number: US-ROCHE-3298916

PATIENT
  Age: 33 Year
  Sex: Female
  Weight: 108.95 kg

DRUGS (20)
  1. CLONAZEPAM [Suspect]
     Active Substance: CLONAZEPAM
     Indication: Product used for unknown indication
     Dosage: DAILY DOSE: 0.5 MILLIGRAM
     Route: 048
     Dates: start: 20220119
  2. OCREVUS [Suspect]
     Active Substance: OCRELIZUMAB
     Indication: Multiple sclerosis
     Dosage: INFUSE 600MG IV EVERY 6 MONTHS ?DATE OF INFUSION: 14/APR/2022
     Route: 042
     Dates: start: 201912
  3. OCREVUS [Suspect]
     Active Substance: OCRELIZUMAB
     Indication: Multiple sclerosis
     Dosage: INFUSE 600MG IV EVERY 6 MONTHS ?DATE OF INFUSION: 14/APR/2022
     Route: 042
     Dates: start: 20220414
  4. ADDERALL [Concomitant]
     Active Substance: AMPHETAMINE ASPARTATE\AMPHETAMINE SULFATE\DEXTROAMPHETAMINE SACCHARATE\DEXTROAMPHETAMINE SULFATE
  5. POTASSIUM [Concomitant]
     Active Substance: POTASSIUM
  6. LEXAPRO [Concomitant]
     Active Substance: ESCITALOPRAM OXALATE
  7. ACETAZOLAMIDE [Concomitant]
     Active Substance: ACETAZOLAMIDE
  8. ACETAMINOPHEN [Concomitant]
     Active Substance: ACETAMINOPHEN
  9. SOLU-MEDROL [Concomitant]
     Active Substance: METHYLPREDNISOLONE SODIUM SUCCINATE
  10. MAXALT-MLT [Concomitant]
     Active Substance: RIZATRIPTAN BENZOATE
  11. MEDROL [Concomitant]
     Active Substance: METHYLPREDNISOLONE
  12. NURTEC ODT [Concomitant]
     Active Substance: RIMEGEPANT SULFATE
  13. RELPAX [Concomitant]
     Active Substance: ELETRIPTAN HYDROBROMIDE
  14. BENADRYL [Concomitant]
     Active Substance: DIPHENHYDRAMINE HYDROCHLORIDE
  15. ZYRTEC [Concomitant]
     Active Substance: CETIRIZINE HYDROCHLORIDE
  16. BIOTIN [Concomitant]
     Active Substance: BIOTIN
  17. VITAMIN D3 [Concomitant]
     Active Substance: CHOLECALCIFEROL
  18. OMEGA 3 [Concomitant]
     Active Substance: CAPSAICIN
  19. LYSINE [Concomitant]
     Active Substance: LYSINE
  20. COENZYME Q10 [Concomitant]
     Active Substance: DIETARY SUPPLEMENT\UBIDECARENONE

REACTIONS (8)
  - Seizure [Unknown]
  - Aphasia [Unknown]
  - Memory impairment [Unknown]
  - Amnesia [Unknown]
  - Fall [Unknown]
  - Apathy [Unknown]
  - Balance disorder [Unknown]
  - Muscular weakness [Unknown]
